FAERS Safety Report 6715440-5 (Version None)
Quarter: 2010Q2

REPORT INFORMATION
  Report Type: 
  Country: None (occurrence: None)
  Receive Date: 20100507
  Receipt Date: 20100504
  Transmission Date: 20101027
  Serious: Yes (Other)
  Sender: FDA-Public Use
  Company Number: DE-SANOFI-AVENTIS-2010SA023617

PATIENT
  Age: 77 Year
  Sex: Male
  Weight: 86 kg

DRUGS (7)
  1. MULTAQ [Suspect]
     Route: 048
     Dates: start: 20100304, end: 20100420
  2. ACETYLSALICYLIC ACID [Concomitant]
     Indication: ATRIAL FIBRILLATION
     Route: 048
     Dates: start: 20100304, end: 20100401
  3. ACETYLSALICYLIC ACID [Concomitant]
     Route: 048
     Dates: start: 20100401
  4. CONCOR [Concomitant]
     Indication: ATRIAL FIBRILLATION
     Route: 048
     Dates: start: 20100304
  5. DELIX [Concomitant]
     Indication: HYPERTENSION
     Route: 048
     Dates: start: 20100304
  6. PANTOZOL [Concomitant]
     Route: 048
     Dates: start: 20100304
  7. EMBOLEX [Concomitant]
     Indication: DRUG USE FOR UNKNOWN INDICATION
     Route: 058
     Dates: start: 20100304, end: 20100404

REACTIONS (1)
  - VENTRICULAR TACHYCARDIA [None]
